FAERS Safety Report 9719170 (Version 1)
Quarter: 2013Q4

REPORT INFORMATION
  Report Type: Spontaneous
  Country: AT (occurrence: AT)
  Receive Date: 20131127
  Receipt Date: 20131127
  Transmission Date: 20140711
  Serious: Yes (Other)
  Sender: FDA-Public Use
  Company Number: PHHY2013AT136390

PATIENT
  Age: 80 Year
  Sex: Male

DRUGS (1)
  1. RISPERIDONE [Suspect]
     Dosage: 1 MG, QD

REACTIONS (1)
  - Drug reaction with eosinophilia and systemic symptoms [Unknown]
